FAERS Safety Report 5275891-5 (Version None)
Quarter: 2007Q1

REPORT INFORMATION
  Report Type: 
  Country: None (occurrence: None)
  Receive Date: 20070326
  Receipt Date: 20070315
  Transmission Date: 20070707
  Serious: Yes (Other)
  Sender: FDA-Public Use
  Company Number: 2007AP01689

PATIENT
  Age: 62 Year
  Sex: Male

DRUGS (1)
  1. OMEPRAL [Suspect]
     Route: 048
     Dates: start: 20051201, end: 20060401

REACTIONS (1)
  - LIVER DISORDER [None]
